FAERS Safety Report 21595391 (Version 1)
Quarter: 2022Q4

REPORT INFORMATION
  Report Type: Spontaneous
  Country: US (occurrence: US)
  Receive Date: 20221115
  Receipt Date: 20221115
  Transmission Date: 20230112
  Serious: Yes (Other)
  Sender: FDA-Public Use
  Company Number: US-PFIZER INC-2021153560

PATIENT
  Age: 82 Year
  Sex: Female
  Weight: 81.65 kg

DRUGS (2)
  1. VYNDAMAX [Suspect]
     Active Substance: TAFAMIDIS
     Indication: Amyloidosis
     Dosage: 61 MG, DAILY
     Route: 048
  2. SPIRONOLACTONE [Concomitant]
     Active Substance: SPIRONOLACTONE
     Indication: Amyloidosis
     Dosage: 25 MG, DAILY
     Dates: start: 202203

REACTIONS (2)
  - Therapeutic response unexpected [Recovering/Resolving]
  - Off label use [Unknown]
